FAERS Safety Report 10209558 (Version 2)
Quarter: 2014Q2

REPORT INFORMATION
  Report Type: Spontaneous
  Country: IT (occurrence: IT)
  Receive Date: 20140602
  Receipt Date: 20140613
  Transmission Date: 20141212
  Serious: Yes (Hospitalization)
  Sender: FDA-Public Use
  Company Number: IT-ROCHE-1410669

PATIENT
  Age: 40 Year
  Sex: Female

DRUGS (4)
  1. TOCILIZUMAB [Suspect]
     Indication: RHEUMATOID ARTHRITIS
     Route: 042
     Dates: start: 20130305, end: 20140415
  2. HYDROXYCHLOROQUINE [Concomitant]
     Route: 065
  3. METILPREDNISOLONE [Concomitant]
     Route: 065
  4. PANTOPRAZOLE [Concomitant]
     Route: 065

REACTIONS (1)
  - Menometrorrhagia [Unknown]
